FAERS Safety Report 8440009-4 (Version None)
Quarter: 2012Q2

REPORT INFORMATION
  Report Type: 
  Country: None (occurrence: None)
  Receive Date: 20120615
  Receipt Date: 20120604
  Transmission Date: 20120825
  Serious: Yes (Hospitalization)
  Sender: FDA-Public Use
  Company Number: US-BAYER-2012-056428

PATIENT
  Sex: Male

DRUGS (2)
  1. ASPIRIN [Suspect]
  2. XGEVA [Concomitant]

REACTIONS (1)
  - BACK PAIN [None]
